FAERS Safety Report 7550160-9 (Version None)
Quarter: 2011Q2

REPORT INFORMATION
  Report Type: 
  Country: None (occurrence: None)
  Receive Date: 20110615
  Receipt Date: 20110602
  Transmission Date: 20111010
  Serious: Yes (Hospitalization)
  Sender: FDA-Public Use
  Company Number: RU-UCBSA-8014049

PATIENT
  Sex: Female
  Weight: 72 kg

DRUGS (4)
  1. CDP870 [Suspect]
     Indication: RHEUMATOID ARTHRITIS
     Dosage: - NR OF DOSES :6
     Route: 058
     Dates: start: 20051010, end: 20051219
  2. METHOTREXATE [Concomitant]
     Indication: RHEUMATOID ARTHRITIS
     Route: 048
     Dates: start: 20040915
  3. PREDNIZOLONE [Concomitant]
     Indication: RHEUMATOID ARTHRITIS
     Dosage: DOSE FREQ.: DAILY
     Route: 048
     Dates: start: 20020401
  4. DICLOFENAC SODIUM [Concomitant]
     Indication: RHEUMATOID ARTHRITIS
     Route: 048
     Dates: start: 20041201

REACTIONS (2)
  - ALVEOLITIS FIBROSING [None]
  - RESPIRATORY FAILURE [None]
